FAERS Safety Report 23104595 (Version 4)
Quarter: 2024Q3

REPORT INFORMATION
  Report Type: Report from Study
  Country: US (occurrence: US)
  Receive Date: 20231025
  Receipt Date: 20240904
  Transmission Date: 20241017
  Serious: Yes (Hospitalization, Other)
  Sender: AMNEAL
  Company Number: US-AMNEAL PHARMACEUTICALS-2023-AMRX-03672

PATIENT
  Sex: Female

DRUGS (2)
  1. CARBIDOPA\LEVODOPA [Suspect]
     Active Substance: CARBIDOPA\LEVODOPA
     Indication: Parkinson^s disease
     Dosage: (23.75-95MG) TAKE UP TO 10 CAPSULES BY MOUTH EVERY DAY AS DIRECTED
     Route: 048
  2. CARBIDOPA\LEVODOPA [Suspect]
     Active Substance: CARBIDOPA\LEVODOPA
     Dosage: (23.75-95MG) TAKE UP TO 8 CAPSULES A DAY
     Route: 048
     Dates: start: 20240402

REACTIONS (2)
  - Cerebrovascular accident [Recovered/Resolved]
  - Hallucination [Unknown]
